FAERS Safety Report 25555204 (Version 1)
Quarter: 2025Q3

REPORT INFORMATION
  Report Type: Spontaneous
  Country: EU (occurrence: EU)
  Receive Date: 20250715
  Receipt Date: 20250715
  Transmission Date: 20251020
  Serious: Yes (Life-Threatening, Hospitalization)
  Sender: FERRING
  Company Number: EU-FERRINGPH-2005-01110FE

PATIENT

DRUGS (5)
  1. MENOTROPINS [Suspect]
     Active Substance: MENOTROPINS
     Indication: In vitro fertilisation
     Route: 058
     Dates: start: 20050924, end: 20050930
  2. GONAL-F [Concomitant]
     Active Substance: FOLLITROPIN
     Indication: In vitro fertilisation
     Route: 058
     Dates: start: 20031114, end: 20031125
  3. GONAL-F [Concomitant]
     Active Substance: FOLLITROPIN
     Route: 058
     Dates: start: 20040209, end: 20040217
  4. GONAL-F [Concomitant]
     Active Substance: FOLLITROPIN
     Route: 058
     Dates: start: 20040609, end: 20040622
  5. GONAL-F [Concomitant]
     Active Substance: FOLLITROPIN
     Route: 058
     Dates: start: 200506, end: 200506

REACTIONS (1)
  - Malignant melanoma [Recovered/Resolved with Sequelae]

NARRATIVE: CASE EVENT DATE: 20050101
